FAERS Safety Report 16744931 (Version 1)
Quarter: 2019Q4

REPORT INFORMATION
  Report Type: Spontaneous
  Country: US (occurrence: US)
  Receive Date: 20190826
  Receipt Date: 20190826
  Transmission Date: 20200122
  Serious: Yes (Hospitalization)
  Sender: FDA-Public Use
  Company Number: None

PATIENT
  Age: 8 Month
  Sex: Female

DRUGS (3)
  1. PULMOZYME [Suspect]
     Active Substance: DORNASE ALFA
  2. PULMOZYME [Suspect]
     Active Substance: DORNASE ALFA
     Dates: start: 20190401, end: 20190826
  3. CREON [Suspect]
     Active Substance: PANCRELIPASE AMYLASE\PANCRELIPASE LIPASE\PANCRELIPASE PROTEASE
     Dates: end: 20190826

REACTIONS (3)
  - Cystic fibrosis [None]
  - Condition aggravated [None]
  - Underweight [None]

NARRATIVE: CASE EVENT DATE: 20190826
